FAERS Safety Report 6790890-X (Version None)
Quarter: 2010Q2

REPORT INFORMATION
  Report Type: 
  Country: None (occurrence: None)
  Receive Date: 20100624
  Receipt Date: 20100617
  Transmission Date: 20101027
  Serious: Yes (Hospitalization)
  Sender: FDA-Public Use
  Company Number: B0657760A

PATIENT
  Sex: Female

DRUGS (18)
  1. AUGMENTIN '125' [Suspect]
     Indication: PROPHYLAXIS
     Dosage: 2G PER DAY
     Route: 042
     Dates: start: 20100520, end: 20100520
  2. ATRACURIUM [Suspect]
     Route: 042
     Dates: start: 20100520, end: 20100520
  3. PROPOFOL [Suspect]
     Route: 042
     Dates: start: 20100520, end: 20100520
  4. SUFENTA PRESERVATIVE FREE [Suspect]
     Route: 042
     Dates: start: 20100520, end: 20100520
  5. NORMACOL [Suspect]
     Indication: PREMEDICATION
     Route: 054
     Dates: start: 20100519, end: 20100519
  6. BETADINE [Suspect]
     Indication: PREOPERATIVE CARE
     Route: 061
     Dates: start: 20100519, end: 20100520
  7. BETADINE [Suspect]
     Route: 067
     Dates: start: 20100520, end: 20100520
  8. DROPERIDOL [Suspect]
     Route: 042
     Dates: start: 20100520, end: 20100520
  9. ATARAX [Suspect]
     Indication: PREMEDICATION
     Dosage: 75MG PER DAY
     Route: 048
     Dates: start: 20100519, end: 20100520
  10. OXYGEN + PROTOXYDE D'AZOTE [Suspect]
     Route: 055
     Dates: start: 20100520, end: 20100520
  11. SEVORANE [Suspect]
     Route: 055
     Dates: start: 20100520, end: 20100520
  12. LODOZ [Concomitant]
     Route: 065
  13. LEVOTHYROXINE SODIUM [Concomitant]
     Route: 065
  14. PERFALGAN [Concomitant]
     Route: 065
     Dates: start: 20100520
  15. ACUPAN [Concomitant]
     Route: 065
     Dates: start: 20100520
  16. RINGER'S [Concomitant]
     Route: 065
     Dates: start: 20100520
  17. PHYSIOLOGICAL SERUM [Concomitant]
     Route: 065
     Dates: start: 20100520
  18. GLUCOSE SOLUTION [Concomitant]
     Route: 065
     Dates: start: 20100520

REACTIONS (11)
  - BLOOD LACTATE DEHYDROGENASE INCREASED [None]
  - HAEMATURIA [None]
  - HAEMOLYSIS [None]
  - HAPTOGLOBIN DECREASED [None]
  - LYMPHOPENIA [None]
  - NEPHROANGIOSCLEROSIS [None]
  - OLIGURIA [None]
  - PRODUCT QUALITY ISSUE [None]
  - RENAL FAILURE ACUTE [None]
  - RENAL TUBULAR NECROSIS [None]
  - THROMBOCYTOPENIA [None]
